FAERS Safety Report 5108475-X (Version None)
Quarter: 2006Q3

REPORT INFORMATION
  Report Type: 
  Country: None (occurrence: None)
  Receive Date: 20060914
  Receipt Date: 20060830
  Transmission Date: 20061208
  Serious: Yes (Hospitalization)
  Sender: FDA-Public Use
  Company Number: 6025432

PATIENT
  Age: 71 Year
  Sex: Male

DRUGS (17)
  1. DETENSIEL (10 MG, TABLET) (BISOPROLOL FUMARATE) [Suspect]
     Indication: DRUG USE FOR UNKNOWN INDICATION
     Dosage: 15 MG (15 MG, 1 D), ORAL
     Route: 048
  2. ROVALCYTE (VALGANCICLOVIR) [Suspect]
     Indication: DRUG USE FOR UNKNOWN INDICATION
     Dates: end: 20060701
  3. CELLCEPT [Suspect]
     Indication: DRUG USE FOR UNKNOWN INDICATION
     Dates: end: 20060709
  4. PROGRAF [Suspect]
     Indication: DRUG USE FOR UNKNOWN INDICATION
     Dates: end: 20060728
  5. SOLUPRED (TABLET) (PREDNISOLONE SODIUM SULFOBENZOATE) [Suspect]
     Indication: DRUG USE FOR UNKNOWN INDICATION
     Dosage: 10 MG (10 MG, 1 D) ORAL
     Route: 048
  6. ARANESP [Suspect]
     Indication: DRUG USE FOR UNKNOWN INDICATION
  7. PLAVIX [Suspect]
     Indication: DRUG USE FOR UNKNOWN INDICATION
     Dates: end: 20060714
  8. PLAVIX [Suspect]
     Indication: DRUG USE FOR UNKNOWN INDICATION
     Dates: start: 20060728, end: 20060818
  9. AMLOR (5 MG, CAPSULE) (AMLODIPINE BESILATE) [Suspect]
     Indication: DRUG USE FOR UNKNOWN INDICATION
     Dosage: 10 MG (5 MG, 2 IN 1 D) ORAL
     Route: 048
  10. FERROUS SULFATE TAB [Suspect]
     Indication: DRUG USE FOR UNKNOWN INDICATION
     Dates: end: 20060714
  11. XATRAL (ALFUZOSIN) [Suspect]
     Indication: DRUG USE FOR UNKNOWN INDICATION
     Dosage: 10 MG (10 MG, 1 D) ORAL
     Route: 048
     Dates: end: 20060818
  12. OMEPRAZOLE [Suspect]
     Indication: DRUG USE FOR UNKNOWN INDICATION
     Dates: end: 20060727
  13. ATORVASTATIN CALCIUM [Suspect]
     Indication: DRUG USE FOR UNKNOWN INDICATION
     Dates: end: 20060728
  14. IMOVANE (ZOPICLONE) [Suspect]
     Indication: DRUG USE FOR UNKNOWN INDICATION
     Dosage: SEE IMAGE
     Route: 048
     Dates: end: 20060714
  15. IMOVANE (ZOPICLONE) [Suspect]
     Indication: DRUG USE FOR UNKNOWN INDICATION
     Dosage: SEE IMAGE
     Route: 048
     Dates: end: 20060818
  16. LANTUS [Suspect]
     Indication: DRUG USE FOR UNKNOWN INDICATION
     Dates: start: 20060401, end: 20060816
  17. RAPAMUNE [Concomitant]

REACTIONS (6)
  - AGRANULOCYTOSIS [None]
  - ANAEMIA [None]
  - DIARRHOEA [None]
  - LYMPHOPENIA [None]
  - NEUTROPENIA [None]
  - PYREXIA [None]
